FAERS Safety Report 5888267-4 (Version None)
Quarter: 2008Q3

REPORT INFORMATION
  Report Type: 
  Country: None (occurrence: None)
  Receive Date: 20080918
  Receipt Date: 20080912
  Transmission Date: 20090109
  Serious: Yes (Other)
  Sender: FDA-Public Use
  Company Number: FR-ASTRAZENECA-2008CG01339

PATIENT
  Sex: Female

DRUGS (2)
  1. ZOMIGORO [Suspect]
     Indication: MIGRAINE
     Route: 048
     Dates: start: 20070101, end: 20080101
  2. ZOMIGORO [Suspect]
     Route: 048
     Dates: start: 20080101, end: 20080808

REACTIONS (5)
  - ASTHENIA [None]
  - DIZZINESS [None]
  - INTENTIONAL DRUG MISUSE [None]
  - MUSCULAR WEAKNESS [None]
  - TINNITUS [None]
